FAERS Safety Report 6763425-5 (Version None)
Quarter: 2010Q2

REPORT INFORMATION
  Report Type: 
  Country: None (occurrence: None)
  Receive Date: 20100610
  Receipt Date: 20100602
  Transmission Date: 20101027
  Serious: Yes (Other)
  Sender: FDA-Public Use
  Company Number: CA-CELGENEUS-028-21880-10060463

PATIENT
  Sex: Male

DRUGS (7)
  1. REVLIMID [Suspect]
     Indication: MULTIPLE MYELOMA
     Route: 048
     Dates: start: 20100505, end: 20100501
  2. REVLIMID [Suspect]
     Route: 048
     Dates: start: 20100501
  3. WARFARIN [Concomitant]
     Route: 065
  4. CALCIUM CARBONATE [Concomitant]
     Route: 065
  5. VITAMIN B COMPLEX TAB [Concomitant]
     Route: 065
  6. VTIAMIN D [Concomitant]
     Route: 065
  7. LIPITOR [Concomitant]
     Route: 065

REACTIONS (1)
  - HEART RATE IRREGULAR [None]
